FAERS Safety Report 19920175 (Version 3)
Quarter: 2024Q1

REPORT INFORMATION
  Report Type: Spontaneous
  Country: US (occurrence: US)
  Receive Date: 20211005
  Receipt Date: 20240227
  Transmission Date: 20240409
  Serious: No
  Sender: FDA-Public Use
  Company Number: US-PFIZER INC-2021746740

PATIENT
  Age: 63 Year
  Sex: Female
  Weight: 70.295 kg

DRUGS (10)
  1. BOSULIF [Suspect]
     Active Substance: BOSUTINIB MONOHYDRATE
     Indication: Chronic myeloid leukaemia
     Dosage: 300 MG, DAILY
     Route: 048
  2. MELATONIN [Concomitant]
     Active Substance: MELATONIN
     Dosage: 10 MG, UNK
  3. FIBER [Concomitant]
     Dosage: 0.52 G, UNK
  4. VITAMIIN D PAIKESE [Concomitant]
     Dosage: 10 UG
  5. ESTROGENS [Concomitant]
     Active Substance: ESTROGENS
     Dosage: UNK
  6. METHYLTESTOSTERON [Concomitant]
     Dosage: UNK
  7. FLUOXETINE DR REDDYS [Concomitant]
     Dosage: 90 MG, UNK
  8. LISINOPRIL [Concomitant]
     Active Substance: LISINOPRIL
     Dosage: 10 MG, UNK
  9. ALEVE [Concomitant]
     Active Substance: NAPROXEN SODIUM
     Dosage: 220 MG, UNK
  10. TYLENOL [Concomitant]
     Active Substance: ACETAMINOPHEN
     Dosage: 325 MG, UNK

REACTIONS (13)
  - Product dose omission issue [Unknown]
  - Bone pain [Unknown]
  - Gait disturbance [Unknown]
  - Arthralgia [Unknown]
  - Headache [Unknown]
  - Contusion [Unknown]
  - Upper respiratory tract infection [Unknown]
  - Oral herpes [Unknown]
  - Joint swelling [Unknown]
  - Thirst [Unknown]
  - Dry mouth [Unknown]
  - Fatigue [Unknown]
  - Renal disorder [Unknown]

NARRATIVE: CASE EVENT DATE: 20210101
